FAERS Safety Report 17195689 (Version 1)
Quarter: 2019Q4

REPORT INFORMATION
  Report Type: Spontaneous
  Country: US (occurrence: US)
  Receive Date: 20191202
  Receipt Date: 20191202
  Transmission Date: 20200122
  Serious: No
  Sender: FDA-Public Use
  Company Number: None

PATIENT
  Age: 26 Year
  Sex: Female

DRUGS (1)
  1. OMNIPAQUE [Suspect]
     Active Substance: IOHEXOL
     Indication: ABDOMEN SCAN
     Dates: start: 20191018

REACTIONS (3)
  - Nausea [None]
  - Chest pain [None]
  - Contrast media reaction [None]

NARRATIVE: CASE EVENT DATE: 20191018
